FAERS Safety Report 7671701-7 (Version None)
Quarter: 2011Q3

REPORT INFORMATION
  Report Type: 
  Country: None (occurrence: None)
  Receive Date: 20110804
  Receipt Date: 20110727
  Transmission Date: 20111222
  Serious: Yes (Other)
  Sender: FDA-Public Use
  Company Number: CIP10002723

PATIENT
  Age: 75 Year
  Sex: Female

DRUGS (7)
  1. AMBIEN [Concomitant]
  2. LOVASTATIN [Concomitant]
  3. ATENOLOL [Concomitant]
  4. NIFEDICAL XL (NIFEDIPINE) [Concomitant]
  5. GABAPENTIN [Concomitant]
  6. ASPIRIN [Concomitant]
  7. ACTONEL [Suspect]
     Indication: OSTEOPOROSIS
     Dosage: 35 MG ONCE WEEKLY, ORAL
     Route: 048
     Dates: start: 20050401, end: 20090401

REACTIONS (14)
  - PERIODONTITIS [None]
  - SPEECH DISORDER [None]
  - SENSITIVITY OF TEETH [None]
  - LOOSE TOOTH [None]
  - TOOTH INJURY [None]
  - FEAR [None]
  - GINGIVITIS [None]
  - BONE LOSS [None]
  - JAW DISORDER [None]
  - HYPOPHAGIA [None]
  - DENTAL DISCOMFORT [None]
  - ARTIFICIAL CROWN PROCEDURE [None]
  - CONDITION AGGRAVATED [None]
  - TOOTH DISORDER [None]
